FAERS Safety Report 17483692 (Version 1)
Quarter: 2020Q1

REPORT INFORMATION
  Report Type: Spontaneous
  Country: None (occurrence: US)
  Receive Date: 20200302
  Receipt Date: 20200302
  Transmission Date: 20200409
  Serious: No
  Sender: FDA-Public Use
  Company Number: US-RC OUTSOURCING, LLC-2081171

PATIENT

DRUGS (1)
  1. BEVACIZUMAB 2.5 MG/0.1 ML [Suspect]
     Active Substance: BEVACIZUMAB
     Route: 031

REACTIONS (1)
  - Endophthalmitis [Recovered/Resolved]
